FAERS Safety Report 9208659 (Version 1)
Quarter: 2013Q2

REPORT INFORMATION
  Report Type: Spontaneous
  Country: US (occurrence: None)
  Receive Date: 20130402
  Receipt Date: 20130402
  Transmission Date: 20140414
  Serious: No
  Sender: FDA-Public Use
  Company Number: None

PATIENT
  Sex: Male

DRUGS (1)
  1. VICKS SINEX 12 HOUR ULTRA FINE MIST [Suspect]

REACTIONS (5)
  - Nasal congestion [None]
  - Oral discomfort [None]
  - Rhinorrhoea [None]
  - Swelling [None]
  - Purulence [None]
